FAERS Safety Report 23697850 (Version 2)
Quarter: 2024Q2

REPORT INFORMATION
  Report Type: Spontaneous
  Country: ES (occurrence: ES)
  Receive Date: 20240402
  Receipt Date: 20240414
  Transmission Date: 20240716
  Serious: Yes (Other)
  Sender: FDA-Public Use
  Company Number: ES-BIOCON BIOLOGICS LIMITED-BBL2024001705

PATIENT
  Age: 47 Year
  Sex: Female

DRUGS (4)
  1. MESALAMINE [Suspect]
     Active Substance: MESALAMINE
     Indication: Crohn^s disease
     Dosage: UNK
     Route: 065
  2. MESALAMINE [Suspect]
     Active Substance: MESALAMINE
     Indication: Inflammatory bowel disease
  3. ADALIMUMAB [Suspect]
     Active Substance: ADALIMUMAB\ISOPROPYL ALCOHOL
     Indication: Crohn^s disease
     Dosage: UNK
     Route: 065
  4. ADALIMUMAB [Suspect]
     Active Substance: ADALIMUMAB\ISOPROPYL ALCOHOL
     Indication: Inflammatory bowel disease

REACTIONS (13)
  - Actinomycotic skin infection [Unknown]
  - Pneumonia [Unknown]
  - Therapy non-responder [Unknown]
  - Lung infiltration [Unknown]
  - Diarrhoea [Unknown]
  - Anal abscess [Unknown]
  - Actinomycosis [Unknown]
  - Bronchiectasis [Unknown]
  - Abdominal discomfort [Unknown]
  - Tonsillar hypertrophy [Unknown]
  - Condition aggravated [Unknown]
  - Abdominal pain [Unknown]
  - Oral mucosal erythema [Unknown]
